FAERS Safety Report 22587166 (Version 7)
Quarter: 2023Q4

REPORT INFORMATION
  Report Type: Spontaneous
  Country: US (occurrence: US)
  Receive Date: 20230612
  Receipt Date: 20231205
  Transmission Date: 20240109
  Serious: Yes (Other)
  Sender: FDA-Public Use
  Company Number: US-BRISTOL-MYERS SQUIBB COMPANY-2023-081395

PATIENT
  Age: 85 Year
  Sex: Female

DRUGS (2)
  1. LENALIDOMIDE [Suspect]
     Active Substance: LENALIDOMIDE
     Indication: Myelodysplastic syndrome
     Dosage: 1 CAPSULE BY MOUTH EVERYDAY?TAKE 1 CAPSULE BY MOUTH EVERY DAY FOR 28 DAYS
     Route: 048
     Dates: start: 20211221
  2. LENALIDOMIDE [Suspect]
     Active Substance: LENALIDOMIDE
     Dosage: TAKE 1 CAPSULE BY EVERY DAY ?TAKE 1 CAPSULE BY?MOUTH DAILY FOR 28 DAYS
     Route: 048
     Dates: start: 20221118

REACTIONS (12)
  - Gastrointestinal infection [Recovered/Resolved]
  - Diarrhoea [Not Recovered/Not Resolved]
  - Platelet count decreased [Not Recovered/Not Resolved]
  - Off label use [Unknown]
  - Neck pain [Not Recovered/Not Resolved]
  - Contusion [Recovered/Resolved]
  - Peripheral swelling [Recovered/Resolved]
  - Tongue blistering [Recovered/Resolved]
  - Accident [Not Recovered/Not Resolved]
  - Constipation [Not Recovered/Not Resolved]
  - Pain [Not Recovered/Not Resolved]
  - Headache [Not Recovered/Not Resolved]
